FAERS Safety Report 12328619 (Version 1)
Quarter: 2016Q2

REPORT INFORMATION
  Report Type: Spontaneous
  Country: US (occurrence: US)
  Receive Date: 20160503
  Receipt Date: 20160503
  Transmission Date: 20160815
  Serious: No
  Sender: FDA-Public Use
  Company Number: US-BEH-2015049615

PATIENT
  Age: 26 Year
  Sex: Male
  Weight: 75 kg

DRUGS (9)
  1. HIZENTRA [Suspect]
     Active Substance: HUMAN IMMUNOGLOBULIN G
     Indication: IMMUNODEFICIENCY COMMON VARIABLE
     Route: 058
     Dates: start: 20150307
  2. DIPHENHYDRAMINE. [Concomitant]
     Active Substance: DIPHENHYDRAMINE
  3. EPIDUO [Concomitant]
     Active Substance: ADAPALENE\BENZOYL PEROXIDE
  4. HIZENTRA [Suspect]
     Active Substance: HUMAN IMMUNOGLOBULIN G
     Route: 058
     Dates: start: 20150307
  5. LIDOCAINE. [Concomitant]
     Active Substance: LIDOCAINE
  6. METROGEL [Concomitant]
     Active Substance: METRONIDAZOLE
  7. MULTIVITAMIN [Concomitant]
     Active Substance: VITAMINS
  8. EPIPEN [Concomitant]
     Active Substance: EPINEPHRINE
  9. VITAMIN D2 [Concomitant]
     Active Substance: ERGOCALCIFEROL

REACTIONS (7)
  - Fatigue [Recovered/Resolved]
  - Administration site pruritus [Recovered/Resolved]
  - Diarrhoea [Recovered/Resolved]
  - Infusion site bruising [Recovered/Resolved]
  - Fatigue [Recovered/Resolved]
  - Headache [Recovered/Resolved]
  - Administration site swelling [Recovered/Resolved]

NARRATIVE: CASE EVENT DATE: 20150307
